FAERS Safety Report 7982244-5 (Version None)
Quarter: 2011Q4

REPORT INFORMATION
  Report Type: 
  Country: None (occurrence: None)
  Receive Date: 20111214
  Receipt Date: 20111214
  Transmission Date: 20120403
  Serious: Yes (Hospitalization)
  Sender: FDA-Public Use
  Company Number: None

PATIENT
  Sex: Female
  Weight: 82.1 kg

DRUGS (2)
  1. CARBOPLATIN [Suspect]
     Dosage: 750 MG
     Dates: end: 20111128
  2. ETOPOSIDE [Suspect]
     Dosage: 1618.5 MG
     Dates: end: 20111130

REACTIONS (2)
  - LUMBAR VERTEBRAL FRACTURE [None]
  - COMPRESSION FRACTURE [None]
